FAERS Safety Report 18902082 (Version 3)
Quarter: 2021Q1

REPORT INFORMATION
  Report Type: Report from Study
  Country: US (occurrence: US)
  Receive Date: 20210217
  Receipt Date: 20210323
  Transmission Date: 20210420
  Serious: Yes (Hospitalization)
  Sender: FDA-Public Use
  Company Number: US-BIOVITRUM-2021US1591

PATIENT
  Age: 58 Year
  Sex: Female

DRUGS (2)
  1. KINERET [Suspect]
     Active Substance: ANAKINRA
     Dosage: 22/APR/2020 (THERAPY START DATE)
     Route: 058
  2. KINERET [Suspect]
     Active Substance: ANAKINRA
     Indication: PYREXIA
     Route: 058
     Dates: start: 20201223

REACTIONS (3)
  - Urinary tract infection [Unknown]
  - Off label use [Not Recovered/Not Resolved]
  - Illness [Unknown]

NARRATIVE: CASE EVENT DATE: 20201222
